FAERS Safety Report 4615542-3 (Version None)
Quarter: 2005Q1

REPORT INFORMATION
  Report Type: 
  Country: None (occurrence: None)
  Receive Date: 20050322
  Receipt Date: 20050314
  Transmission Date: 20050727
  Serious: Yes (Other)
  Sender: FDA-Public Use
  Company Number: GB-MERCK-0503GBR00123

PATIENT
  Age: 65 Year
  Sex: Female
  Weight: 87 kg

DRUGS (3)
  1. ZETIA [Suspect]
     Route: 048
     Dates: start: 20050209, end: 20050220
  2. ASPIRIN [Concomitant]
     Indication: PROPHYLAXIS
     Route: 048
  3. ALUMINUM HYDROXIDE AND MAGNESIUM CARBONATE [Concomitant]
     Indication: DYSPEPSIA
     Route: 048

REACTIONS (1)
  - ROSACEA [None]
